FAERS Safety Report 7960304-2 (Version None)
Quarter: 2011Q4

REPORT INFORMATION
  Report Type: 
  Country: None (occurrence: None)
  Receive Date: 20111206
  Receipt Date: 20111206
  Transmission Date: 20120403
  Serious: Yes (Life-Threatening, Hospitalization, Other)
  Sender: FDA-Public Use
  Company Number: PHHO2010HK11418

PATIENT
  Sex: Male
  Weight: 56 kg

DRUGS (7)
  1. LASIX [Concomitant]
     Indication: OEDEMA PERIPHERAL
     Dosage: UNK
     Dates: start: 20100628
  2. SLOW-K [Concomitant]
     Indication: HYPOKALAEMIA
     Dosage: UNK
     Dates: start: 20100708
  3. AFINITOR [Suspect]
     Indication: METASTATIC GASTRIC CANCER
     Dosage: 10 MG, QD
     Route: 048
     Dates: start: 20100511, end: 20100729
  4. AFINITOR [Suspect]
     Dosage: OFF STUDY MEDICATION
     Dates: start: 20100730, end: 20100801
  5. AFINITOR [Suspect]
     Dosage: UNK
     Dates: start: 20100805
  6. PERINDOPRIL [Concomitant]
     Indication: HYPERTENSION
     Dosage: UNK
     Dates: start: 20050801
  7. AFINITOR [Suspect]
     Dosage: UNK
     Dates: start: 20100802, end: 20100804

REACTIONS (4)
  - PALPITATIONS [None]
  - ATRIAL FIBRILLATION [None]
  - CHEST DISCOMFORT [None]
  - DIZZINESS [None]
